FAERS Safety Report 5422105-9 (Version None)
Quarter: 2007Q3

REPORT INFORMATION
  Report Type: 
  Country: None (occurrence: None)
  Receive Date: 20070821
  Receipt Date: 20070821
  Transmission Date: 20080115
  Serious: Yes (Life-Threatening)
  Sender: FDA-Public Use
  Company Number: None

PATIENT
  Age: 72 Year
  Sex: Female
  Weight: 91.6266 kg

DRUGS (1)
  1. ACTOS [Suspect]
     Indication: TYPE 2 DIABETES MELLITUS
     Dosage: 15 MG ONCE A DAY PO
     Route: 048
     Dates: start: 20060901, end: 20070815

REACTIONS (7)
  - CONFUSIONAL STATE [None]
  - COUGH [None]
  - DYSSTASIA [None]
  - OEDEMA [None]
  - PLEURAL EFFUSION [None]
  - SWELLING FACE [None]
  - WEIGHT INCREASED [None]
